FAERS Safety Report 23878049 (Version 1)
Quarter: 2024Q2

REPORT INFORMATION
  Report Type: Spontaneous
  Country: AU (occurrence: AU)
  Receive Date: 20240521
  Receipt Date: 20240521
  Transmission Date: 20240716
  Serious: Yes (Death, Other)
  Sender: FDA-Public Use
  Company Number: AU-009507513-2405AUS004768

PATIENT
  Age: 51 Year
  Sex: Female

DRUGS (4)
  1. TEMOZOLOMIDE [Suspect]
     Active Substance: TEMOZOLOMIDE
     Indication: Neoplasm
     Dosage: UNK
     Dates: start: 202209, end: 202212
  2. RELATLIMAB [Suspect]
     Active Substance: RELATLIMAB
     Indication: Neoplasm
     Dosage: UNK
  3. NIVOLUMAB [Suspect]
     Active Substance: NIVOLUMAB
     Dosage: UNK
  4. IPILIMUMAB [Suspect]
     Active Substance: IPILIMUMAB
     Indication: Neoplasm
     Dosage: UNK
     Dates: start: 20220609, end: 20220630

REACTIONS (1)
  - Malignant neoplasm progression [Fatal]
